FAERS Safety Report 10216069 (Version 1)
Quarter: 2014Q2

REPORT INFORMATION
  Report Type: Spontaneous
  Country: US (occurrence: None)
  Receive Date: 20140603
  Receipt Date: 20140603
  Transmission Date: 20141212
  Serious: Yes (Other)
  Sender: FDA-Public Use
  Company Number: None

PATIENT
  Age: 33 Year
  Sex: Female
  Weight: 81.65 kg

DRUGS (1)
  1. POWDERLAX [Suspect]
     Indication: LAXATIVE SUPPORTIVE CARE
     Dosage: ONCE DAILY
     Route: 048
     Dates: start: 20140530, end: 20140601

REACTIONS (1)
  - Rash pruritic [None]
